FAERS Safety Report 16157392 (Version 3)
Quarter: 2020Q1

REPORT INFORMATION
  Report Type: Spontaneous
  Country: US (occurrence: US)
  Receive Date: 20190404
  Receipt Date: 20200210
  Transmission Date: 20200409
  Serious: No
  Sender: FDA-Public Use
  Company Number: US-PFIZER INC-2019142580

PATIENT
  Age: 65 Year
  Sex: Female

DRUGS (2)
  1. EFFEXOR XR [Suspect]
     Active Substance: VENLAFAXINE HYDROCHLORIDE
     Dosage: 225 MG, DAILY (1 CAPSULE OF 150MG AND 1 CAPSULE OF 75MG, 225 MG TOTAL)
  2. EFFEXOR XR [Suspect]
     Active Substance: VENLAFAXINE HYDROCHLORIDE
     Dosage: 225 MG, DAILY (1 CAPSULE OF 150MG AND 1 CAPSULE OF 75MG, 225 MG TOTAL)

REACTIONS (1)
  - Malaise [Unknown]
